FAERS Safety Report 6872496-7 (Version None)
Quarter: 2010Q3

REPORT INFORMATION
  Report Type: 
  Country: None (occurrence: None)
  Receive Date: 20100721
  Receipt Date: 20100716
  Transmission Date: 20110219
  Serious: Yes (Other)
  Sender: FDA-Public Use
  Company Number: US-1182641

PATIENT
  Age: 84 Year
  Sex: Male

DRUGS (3)
  1. OMNIPRED [Suspect]
     Indication: CATARACT OPERATION
     Dosage: (TID OPHTHALMIC)
     Route: 047
  2. NEVANAC [Suspect]
     Indication: CATARACT OPERATION
     Dosage: (OPTHALMIC)
     Route: 047
  3. VIGAMOX [Suspect]
     Indication: CATARACT OPERATION
     Dosage: (OPHTHALMIC)
     Route: 047

REACTIONS (4)
  - EYE DISORDER [None]
  - EYE INFLAMMATION [None]
  - EYE PAIN [None]
  - VISUAL ACUITY REDUCED [None]
